FAERS Safety Report 4817007-2 (Version None)
Quarter: 2005Q4

REPORT INFORMATION
  Report Type: 
  Country: None (occurrence: None)
  Receive Date: 20051101
  Receipt Date: 19960708
  Transmission Date: 20060501
  Serious: Yes (Hospitalization, Other)
  Sender: FDA-Public Use
  Company Number: CH-GLAXOSMITHKLINE-B0196318A

PATIENT
  Age: 65 Year
  Sex: Male

DRUGS (10)
  1. ROPINIROLE [Suspect]
     Indication: PARKINSON'S DISEASE
     Route: 048
     Dates: start: 19940715, end: 19970819
  2. MADOPAR [Concomitant]
     Indication: PARKINSON'S DISEASE
     Route: 048
     Dates: start: 19951005
  3. SELEGILINE HCL [Concomitant]
     Indication: PARKINSON'S DISEASE
     Route: 048
     Dates: start: 19910101
  4. LOPRESSOR [Concomitant]
     Route: 048
     Dates: start: 19951015
  5. ALLOPURINOL [Concomitant]
  6. AUGMENTIN '125' [Concomitant]
  7. SINEMET [Concomitant]
     Indication: PARKINSON'S DISEASE
     Dates: start: 19960913, end: 19970423
  8. SINEMET [Concomitant]
     Dates: start: 19970424
  9. XANAX [Concomitant]
     Dosage: 1MG PER DAY
     Dates: start: 19970827, end: 19970909
  10. SIRDALUD [Concomitant]
     Indication: SCIATICA
     Dosage: 16MG PER DAY
     Dates: start: 19970501

REACTIONS (3)
  - DISTURBANCE IN SOCIAL BEHAVIOUR [None]
  - ILL-DEFINED DISORDER [None]
  - PSYCHOTIC DISORDER [None]
